FAERS Safety Report 11174037 (Version 1)
Quarter: 2015Q2

REPORT INFORMATION
  Report Type: Spontaneous
  Country: US (occurrence: US)
  Receive Date: 20150609
  Receipt Date: 20150609
  Transmission Date: 20150821
  Serious: No
  Sender: FDA-Public Use
  Company Number: US-JNJFOC-20150518933

PATIENT
  Age: 60 Year
  Sex: Female
  Weight: 92.08 kg

DRUGS (1)
  1. FENTANYL TRANSDERMAL SYSTEM [Suspect]
     Active Substance: FENTANYL
     Indication: INTERVERTEBRAL DISC DEGENERATION
     Route: 062
     Dates: start: 2014

REACTIONS (6)
  - Wrong technique in drug usage process [Unknown]
  - Drug dose omission [Unknown]
  - Incorrect drug administration duration [Unknown]
  - Product packaging quantity issue [Unknown]
  - Wrong technique in drug usage process [Unknown]
  - Product adhesion issue [Unknown]

NARRATIVE: CASE EVENT DATE: 2014
